FAERS Safety Report 20043558 (Version 8)
Quarter: 2022Q4

REPORT INFORMATION
  Report Type: Report from Study
  Country: JP (occurrence: JP)
  Receive Date: 20211108
  Receipt Date: 20221216
  Transmission Date: 20230113
  Serious: Yes (Other)
  Sender: FDA-Public Use
  Company Number: JP-TAKEDA-2021TJP114041

PATIENT
  Age: 58 Year
  Sex: Male

DRUGS (9)
  1. LEUPLIN [Suspect]
     Active Substance: LEUPROLIDE ACETATE
     Indication: Bulbospinal muscular atrophy congenital
     Dosage: 11.25 MILLIGRAM, Q3MONTHS
     Route: 058
     Dates: start: 20171026
  2. TAUNUS AQUA [Concomitant]
     Indication: Rhinitis allergic
     Dosage: 8.5 MILLIGRAM
     Route: 045
     Dates: start: 20200326, end: 20200417
  3. HYDROCHLOROTHIAZIDE\LOSARTAN POTASSIUM [Concomitant]
     Active Substance: HYDROCHLOROTHIAZIDE\LOSARTAN POTASSIUM
     Indication: Product used for unknown indication
     Dosage: UNK
     Route: 065
  4. LOXOPROFEN SODIUM [Concomitant]
     Active Substance: LOXOPROFEN SODIUM
     Indication: Bulbospinal muscular atrophy congenital
     Dosage: 100 MILLIGRAM
     Route: 065
     Dates: start: 20181119
  5. LOXOPROFEN SODIUM [Concomitant]
     Active Substance: LOXOPROFEN SODIUM
     Indication: Bulbospinal muscular atrophy congenital
     Dosage: 60 MILLIGRAM
     Route: 065
     Dates: start: 20190601, end: 20200318
  6. BILASTINE [Concomitant]
     Active Substance: BILASTINE
     Indication: Conjunctivitis allergic
     Dosage: 20 MILLIGRAM
     Route: 065
     Dates: start: 20190227, end: 20190803
  7. BILASTINE [Concomitant]
     Active Substance: BILASTINE
     Indication: Conjunctivitis allergic
     Dosage: 20 MILLIGRAM
     Route: 065
     Dates: start: 20200326, end: 20200417
  8. PATANOL [Concomitant]
     Active Substance: OLOPATADINE HYDROCHLORIDE
     Indication: Conjunctivitis allergic
     Dosage: 5 MILLILITER
     Route: 047
     Dates: start: 20190227, end: 20190803
  9. PATANOL [Concomitant]
     Active Substance: OLOPATADINE HYDROCHLORIDE
     Indication: Conjunctivitis allergic
     Dosage: 10 MILLILITER
     Route: 047
     Dates: start: 20200326, end: 20200417

REACTIONS (3)
  - Diabetes mellitus [Not Recovered/Not Resolved]
  - Foot fracture [Recovered/Resolved]
  - Accident [Recovered/Resolved]

NARRATIVE: CASE EVENT DATE: 20180315
